FAERS Safety Report 23698545 (Version 1)
Quarter: 2024Q2

REPORT INFORMATION
  Report Type: Spontaneous
  Country: US (occurrence: US)
  Receive Date: 20240402
  Receipt Date: 20240402
  Transmission Date: 20240715
  Serious: No
  Sender: FDA-Public Use
  Company Number: US-SA-SAC20240327000883

PATIENT
  Sex: Male

DRUGS (7)
  1. DUPIXENT [Suspect]
     Active Substance: DUPILUMAB
     Indication: Dermatitis atopic
     Dosage: FREQUENCY: INJECT 300 MG (1 PEN) SUBCUTANEOUSLY EVERY OTHER WEEK
     Route: 058
  2. ATORVASTATIN [Concomitant]
     Active Substance: ATORVASTATIN
     Indication: Blood cholesterol abnormal
  3. LEVOTHYROXINE [Concomitant]
     Active Substance: LEVOTHYROXINE\LEVOTHYROXINE SODIUM
     Indication: Blood pressure abnormal
  4. LOSARTAN POTASSIUM [Concomitant]
     Active Substance: LOSARTAN POTASSIUM
     Indication: Blood pressure abnormal
  5. FISH OIL [Concomitant]
     Active Substance: FISH OIL
  6. HYDROCHLOROTHIAZIDE [Concomitant]
     Active Substance: HYDROCHLOROTHIAZIDE
     Indication: Blood pressure abnormal
  7. PREVAGEN [APOAEQUORIN] [Concomitant]
     Indication: Memory impairment

REACTIONS (6)
  - Sleep disorder [Unknown]
  - Dermatitis atopic [Unknown]
  - Skin fissures [Unknown]
  - Scab [Unknown]
  - Product dose omission issue [Unknown]
  - Dry skin [Unknown]
